FAERS Safety Report 4778653-8 (Version None)
Quarter: 2005Q3

REPORT INFORMATION
  Report Type: 
  Country: None (occurrence: None)
  Receive Date: 20050926
  Receipt Date: 20050909
  Transmission Date: 20060218
  Serious: Yes (Other)
  Sender: FDA-Public Use
  Company Number: AU-GLAXOSMITHKLINE-B0394503A

PATIENT
  Age: 53 Year
  Sex: Male

DRUGS (4)
  1. FLUTICASONE PROPIONATE + SALMETEROL XINAFOATE [Suspect]
     Indication: ASTHMA
     Route: 055
  2. LOPINAVIR + RITONAVIR [Suspect]
     Indication: HIV INFECTION
     Route: 065
  3. ABACAVIR [Concomitant]
     Route: 065
  4. NEVIRAPINE [Concomitant]
     Route: 065

REACTIONS (12)
  - ADRENAL INSUFFICIENCY [None]
  - ARTHRALGIA [None]
  - BLOOD CORTISOL DECREASED [None]
  - CONTUSION [None]
  - CUSHING'S SYNDROME [None]
  - DIZZINESS [None]
  - DRUG INTERACTION [None]
  - FATIGUE [None]
  - HEADACHE [None]
  - HYPERVOLAEMIA [None]
  - NAUSEA [None]
  - WEIGHT DECREASED [None]
